FAERS Safety Report 9531604 (Version 1)
Quarter: 2013Q2

REPORT INFORMATION
  Report Type: Spontaneous
  Country: US (occurrence: None)
  Receive Date: 20130418
  Receipt Date: 20130418
  Transmission Date: 20140414
  Serious: No
  Sender: FDA-Public Use
  Company Number: 2013PROUSA02484

PATIENT
  Age: 61 Year
  Sex: Male
  Weight: 85.7 kg

DRUGS (5)
  1. PROVENGE (SIPULEUCEL-T) SUSPENSION, 250ML [Suspect]
     Indication: PROSTATE CANCER METASTATIC
     Dosage: 250 ML, SINGLE, INTRAVEOUS?
     Route: 042
     Dates: start: 20121112, end: 20121112
  2. LORTAB (HYDROCODONE BITARTRATE, PARACETAMOL, PROMETHAZINE HYDROCHLORIDE) [Concomitant]
  3. NEOMYCIN SULFATE (NEOMYCIN SULFATE) [Concomitant]
  4. IBUPROFEN (IBUPROFEN) [Concomitant]
  5. VITAMIN E (TOCOPHERYL ACID SUCCINATE) [Concomitant]

REACTIONS (2)
  - Chills [None]
  - Nasopharyngitis [None]
